FAERS Safety Report 8775060 (Version 1)
Quarter: 2012Q4

REPORT INFORMATION
  Report Type: 
  Country: NL (occurrence: NL)
  Receive Date: 20120910
  Receipt Date: 20120910
  Transmission Date: 20130627
  Serious: Yes (Death)
  Sender: FDA-Public Use
  Company Number: PHHY2012NL078087

PATIENT
  Age: 63 Year
  Sex: Male

DRUGS (4)
  1. ZOMETA [Suspect]
     Indication: PROSTATE CANCER METASTATIC
     Dosage: 4 mg/100 ml, once per 84 days
  2. ZOMETA [Suspect]
     Dosage: 4 mg/100 ml, once per 84 days
     Dates: start: 20100125
  3. ZOMETA [Suspect]
     Dosage: 4 mg/100 ml, once per 84 days
     Dates: start: 20120501
  4. ZOMETA [Suspect]
     Dosage: 4 mg/100 ml, once per 84 days
     Dates: start: 20120723

REACTIONS (1)
  - Death [Fatal]
